FAERS Safety Report 4939011-6 (Version None)
Quarter: 2006Q1

REPORT INFORMATION
  Report Type: 
  Country: None (occurrence: None)
  Receive Date: 20060309
  Receipt Date: 20060301
  Transmission Date: 20060701
  Serious: Yes (Other)
  Sender: FDA-Public Use
  Company Number: US-MERCK-0603USA00444

PATIENT
  Age: 67 Year
  Sex: Male
  Weight: 99 kg

DRUGS (1)
  1. VIOXX [Suspect]
     Indication: OSTEOARTHRITIS
     Route: 048
     Dates: start: 20010601, end: 20040701

REACTIONS (2)
  - HEART RATE IRREGULAR [None]
  - MYOCARDIAL INFARCTION [None]
